APPROVED DRUG PRODUCT: POSACONAZOLE
Active Ingredient: POSACONAZOLE
Strength: 100MG
Dosage Form/Route: TABLET, DELAYED RELEASE;ORAL
Application: A216488 | Product #001 | TE Code: AB
Applicant: I 3 PHARMACEUTICALS LLC
Approved: Aug 28, 2023 | RLD: No | RS: No | Type: RX